FAERS Safety Report 6883335-2 (Version None)
Quarter: 2010Q3

REPORT INFORMATION
  Report Type: 
  Country: None (occurrence: None)
  Receive Date: 20100727
  Receipt Date: 20071004
  Transmission Date: 20110219
  Serious: Yes (Hospitalization, Other)
  Sender: FDA-Public Use
  Company Number: US-PFIZER INC-2007029175

PATIENT
  Sex: Female

DRUGS (2)
  1. CELEBREX [Suspect]
     Indication: BACK PAIN
     Dates: start: 20010226
  2. VIOXX [Suspect]
     Dates: start: 20010401, end: 20040901

REACTIONS (2)
  - DEPRESSION [None]
  - MYOCARDIAL INFARCTION [None]
